FAERS Safety Report 8512204-7 (Version None)
Quarter: 2012Q3

REPORT INFORMATION
  Report Type: 
  Country: None (occurrence: None)
  Receive Date: 20120716
  Receipt Date: 20120713
  Transmission Date: 20120928
  Serious: Yes (Death)
  Sender: FDA-Public Use
  Company Number: AU-B.I. PHARMACEUTICALS,INC./RIDGEFIELD-2012-AU-00676AU

PATIENT
  Sex: Male
  Weight: 73 kg

DRUGS (8)
  1. WARFARIN SODIUM [Suspect]
  2. PERINDOPRIL ERBUMINE [Concomitant]
  3. CARVEDILOL [Concomitant]
  4. PRADAXA [Suspect]
     Indication: ATRIAL FIBRILLATION
     Dosage: 220 MG
     Dates: start: 20110618, end: 20110830
  5. LASIX [Concomitant]
     Dosage: 40 NR
  6. TEGRETOL [Concomitant]
     Dosage: 300 MG
  7. ZYLOPRIM [Concomitant]
  8. ZOCOR [Concomitant]

REACTIONS (2)
  - ECCHYMOSIS [None]
  - DEATH [None]
